FAERS Safety Report 7064612-1 (Version None)
Quarter: 2010Q4

REPORT INFORMATION
  Report Type: 
  Country: None (occurrence: None)
  Receive Date: 20101027
  Receipt Date: 20101020
  Transmission Date: 20110411
  Serious: Yes (Other)
  Sender: FDA-Public Use
  Company Number: DE-JNJFOC-20101006022

PATIENT
  Sex: Male
  Weight: 80 kg

DRUGS (2)
  1. DOLORMIN EXTRA [Suspect]
     Route: 048
  2. DOLORMIN EXTRA [Suspect]
     Indication: PRODUCT USED FOR UNKNOWN INDICATION
     Dosage: DOSE DID NOT EXCED MORE THAT 800 MG PER DAY
     Route: 048

REACTIONS (2)
  - CONVULSION [None]
  - SHOCK [None]
